FAERS Safety Report 7958981 (Version 3)
Quarter: 2013Q2

REPORT INFORMATION
  Report Type: Report from Study
  Country: FR (occurrence: FR)
  Receive Date: 20110524
  Receipt Date: 20130607
  Transmission Date: 20140414
  Serious: Yes (Hospitalization, Other)
  Sender: FDA-Public Use
  Company Number: PHHO2011FR08437

PATIENT
  Sex: 0

DRUGS (4)
  1. IMATINIB [Suspect]
     Indication: CHRONIC MYELOID LEUKAEMIA
     Dosage: 300 MG/M2, DAILY
     Route: 048
     Dates: start: 20110415, end: 20110512
  2. IMATINIB [Suspect]
     Dosage: UNK
     Dates: start: 20110513, end: 20110518
  3. IMATINIB [Suspect]
     Dosage: 300 MG/M2, UNK
     Route: 048
     Dates: start: 20110519
  4. L-ASPARAGINASE [Concomitant]
     Dosage: 8650 UL, UNK
     Route: 042
     Dates: start: 20110412, end: 20110504

REACTIONS (1)
  - Hepatic steatosis [Recovered/Resolved]
